FAERS Safety Report 7534484-7 (Version None)
Quarter: 2011Q2

REPORT INFORMATION
  Report Type: 
  Country: None (occurrence: None)
  Receive Date: 20110609
  Receipt Date: 20110606
  Transmission Date: 20111010
  Serious: Yes (Death, Hospitalization)
  Sender: FDA-Public Use
  Company Number: PHHY2011BR49261

PATIENT
  Age: 60 Year
  Sex: Male
  Weight: 61 kg

DRUGS (4)
  1. ACETAMINOPHEN AND CODEINE PHOSPHATE [Concomitant]
     Indication: PAIN
  2. PURAN [Concomitant]
     Indication: THYROID CANCER
  3. CARBAMAZEPINE [Concomitant]
     Indication: PAIN
  4. AFINITOR [Suspect]
     Indication: RENAL CANCER
     Dosage: 10 MG DAILY
     Route: 048

REACTIONS (1)
  - MULTI-ORGAN FAILURE [None]
